FAERS Safety Report 5664520-4 (Version None)
Quarter: 2008Q1

REPORT INFORMATION
  Report Type: 
  Country: None (occurrence: None)
  Receive Date: 20080314
  Receipt Date: 20080312
  Transmission Date: 20080703
  Serious: Yes (Other)
  Sender: FDA-Public Use
  Company Number: D0056502A

PATIENT

DRUGS (1)
  1. ZOVIRAX [Suspect]
     Route: 042
     Dates: start: 20070101

REACTIONS (2)
  - COMPARTMENT SYNDROME [None]
  - INFUSION SITE EXTRAVASATION [None]
